FAERS Safety Report 20469426 (Version 1)
Quarter: 2022Q1

REPORT INFORMATION
  Report Type: Spontaneous
  Country: US (occurrence: US)
  Receive Date: 20220214
  Receipt Date: 20220214
  Transmission Date: 20220424
  Serious: No
  Sender: FDA-Public Use
  Company Number: US-GSKCCFUS-Case-01287826_AE-75100

PATIENT
  Sex: Female

DRUGS (2)
  1. ZEJULA [Suspect]
     Active Substance: NIRAPARIB
     Indication: Product used for unknown indication
     Dosage: UNK
     Dates: end: 20220121
  2. ZEJULA [Suspect]
     Active Substance: NIRAPARIB
     Dosage: 300 MG
     Dates: start: 20220126

REACTIONS (6)
  - Lethargy [Unknown]
  - Swelling face [Unknown]
  - Yellow skin [Unknown]
  - Nausea [Unknown]
  - Blood pressure inadequately controlled [Unknown]
  - Overdose [Unknown]
